FAERS Safety Report 21178699 (Version 1)
Quarter: 2022Q3

REPORT INFORMATION
  Report Type: Report from Study
  Country: US (occurrence: US)
  Receive Date: 20220805
  Receipt Date: 20220805
  Transmission Date: 20221026
  Serious: Yes (Other)
  Sender: FDA-Public Use
  Company Number: US-JAZZ-2022-US-019404

PATIENT
  Sex: Female

DRUGS (1)
  1. XYREM [Suspect]
     Active Substance: SODIUM OXYBATE
     Indication: Hypersomnia
     Dosage: UNK
     Route: 048

REACTIONS (7)
  - Breast cancer [Recovered/Resolved]
  - Asthma [Unknown]
  - Seasonal allergy [Unknown]
  - Malabsorption [Unknown]
  - Multiple allergies [Unknown]
  - Rhinitis [Unknown]
  - Off label use [Unknown]
